FAERS Safety Report 14343558 (Version 1)
Quarter: 2018Q1

REPORT INFORMATION
  Report Type: Report from Study
  Country: US (occurrence: US)
  Receive Date: 20180102
  Receipt Date: 20180102
  Transmission Date: 20180509
  Serious: Yes (Death, Hospitalization)
  Sender: FDA-Public Use
  Company Number: US-BAYER-2017-212323

PATIENT
  Age: 57 Year
  Sex: Female
  Weight: 62.49 kg

DRUGS (5)
  1. ADEMPAS [Suspect]
     Active Substance: RIOCIGUAT
     Indication: PULMONARY ARTERIAL HYPERTENSION
     Dosage: UNK
     Dates: start: 20170912
  2. ADEMPAS [Suspect]
     Active Substance: RIOCIGUAT
     Indication: ACQUIRED IMMUNODEFICIENCY SYNDROME
     Dosage: 2 MG, TID
     Route: 048
  3. OPSUMIT [Concomitant]
     Active Substance: MACITENTAN
     Dosage: UNK
  4. ADEMPAS [Suspect]
     Active Substance: RIOCIGUAT
     Indication: PULMONARY ARTERIAL HYPERTENSION
     Dosage: 2 MG, TID
     Route: 048
  5. WARFARIN [Concomitant]
     Active Substance: WARFARIN
     Dosage: UNK

REACTIONS (6)
  - Death [Fatal]
  - Fluid retention [Unknown]
  - Pulmonary arterial hypertension [None]
  - Renal failure [Unknown]
  - Cardiac failure congestive [Unknown]
  - Off label use [None]

NARRATIVE: CASE EVENT DATE: 201712
